FAERS Safety Report 5162638-6 (Version None)
Quarter: 2006Q4

REPORT INFORMATION
  Report Type: 
  Country: None (occurrence: None)
  Receive Date: 20061201
  Receipt Date: 20061017
  Transmission Date: 20070319
  Serious: Yes (Life-Threatening, Hospitalization)
  Sender: FDA-Public Use
  Company Number: GBWYE270418OCT06

PATIENT
  Sex: Female

DRUGS (8)
  1. ENBREL [Suspect]
     Indication: RHEUMATOID ARTHRITIS
     Route: 058
     Dates: start: 20061013, end: 20061013
  2. CITALOPRAM HYDROBROMIDE [Concomitant]
     Indication: DEPRESSION
     Route: 048
  3. ACETAMINOPHEN W/ CODEINE [Concomitant]
     Dosage: 1 DOSE EVERY 1 PRN
     Route: 048
     Dates: start: 20050101
  4. FOLIC ACID [Concomitant]
     Dosage: 5 MGS 5 DAYS/WEEK
     Route: 048
     Dates: start: 20050119
  5. TRAMADOL HCL [Concomitant]
     Indication: PAIN
     Route: 048
  6. AMITRIPTYLINE HCL [Concomitant]
     Dosage: 20 MG EVERY
     Route: 048
     Dates: start: 20060524
  7. METHOTREXATE [Concomitant]
     Indication: RHEUMATOID ARTHRITIS
     Route: 048
     Dates: start: 20050119
  8. DICLOFENAC SODIUM [Concomitant]
     Indication: RHEUMATOID ARTHRITIS
     Route: 048
     Dates: start: 20051220

REACTIONS (6)
  - CHEST DISCOMFORT [None]
  - HEADACHE [None]
  - MALAISE [None]
  - NAUSEA [None]
  - PHOTOPHOBIA [None]
  - THROAT TIGHTNESS [None]
